FAERS Safety Report 19670955 (Version 1)
Quarter: 2021Q3

REPORT INFORMATION
  Report Type: Spontaneous
  Country: US (occurrence: US)
  Receive Date: 20210806
  Receipt Date: 20210806
  Transmission Date: 20211014
  Serious: No
  Sender: FDA-Public Use
  Company Number: US-PFIZER INC-2021863402

PATIENT
  Age: 52 Year
  Sex: Female
  Weight: 81.63 kg

DRUGS (2)
  1. KLONOPIN [Concomitant]
     Active Substance: CLONAZEPAM
     Dosage: UNK
  2. XELJANZ XR [Suspect]
     Active Substance: TOFACITINIB CITRATE
     Indication: PSORIATIC ARTHROPATHY
     Dosage: 11 MG, 1X/DAY
     Route: 048
     Dates: start: 202104

REACTIONS (7)
  - Rhinorrhoea [Unknown]
  - Rash [Not Recovered/Not Resolved]
  - Product dose omission in error [Recovered/Resolved]
  - Nasal congestion [Unknown]
  - Constipation [Unknown]
  - Drug ineffective [Unknown]
  - Diarrhoea [Unknown]
